FAERS Safety Report 6005566-6 (Version None)
Quarter: 2008Q4

REPORT INFORMATION
  Report Type: 
  Country: None (occurrence: None)
  Receive Date: 20081215
  Receipt Date: 20081208
  Transmission Date: 20090506
  Serious: Yes (Hospitalization)
  Sender: FDA-Public Use
  Company Number: ERP08000025

PATIENT
  Age: 61 Year
  Sex: Male

DRUGS (5)
  1. ACTONEL [Suspect]
     Indication: PROSTATE CANCER
     Dosage: 30 MG, DAILY, ORAL
     Route: 048
     Dates: start: 20080912, end: 20081117
  2. DOCETAXEL [Concomitant]
  3. PREDNISONE [Concomitant]
  4. XATRAL (ALFUZOSIN) [Concomitant]
  5. LORAZEPAM [Concomitant]

REACTIONS (6)
  - HAEMATOCRIT DECREASED [None]
  - HAEMOGLOBIN DECREASED [None]
  - HYDRONEPHROSIS [None]
  - HYPOCALCAEMIA [None]
  - METASTASIS [None]
  - RENAL FAILURE [None]
